FAERS Safety Report 22098116 (Version 1)
Quarter: 2023Q1

REPORT INFORMATION
  Report Type: Spontaneous
  Country: US (occurrence: None)
  Receive Date: 20230314
  Receipt Date: 20230314
  Transmission Date: 20230418
  Serious: No
  Sender: FDA-Public Use
  Company Number: None

PATIENT
  Age: 34 Year
  Sex: Female
  Weight: 61.19 kg

DRUGS (9)
  1. IBRANCE [Suspect]
     Active Substance: PALBOCICLIB
     Indication: Breast cancer female
     Dosage: OTHER FREQUENCY : 3W, 1W OFF;?
     Route: 048
  2. CARBAMAZEPINE [Suspect]
     Active Substance: CARBAMAZEPINE
  3. GLYCOPYRROLATE [Concomitant]
     Active Substance: GLYCOPYRROLATE
  4. GUANFACINE HYDROCHLORIDE [Concomitant]
     Active Substance: GUANFACINE HYDROCHLORIDE
  5. LUPRON DEPOT [Concomitant]
  6. Multivitamin Adult [Concomitant]
  7. TEMAZEPAM [Concomitant]
     Active Substance: TEMAZEPAM
  8. VIMPAT [Concomitant]
     Active Substance: LACOSAMIDE
  9. XGEVA [Concomitant]
     Active Substance: DENOSUMAB

REACTIONS (1)
  - Disease progression [None]
